FAERS Safety Report 8456221-4 (Version None)
Quarter: 2012Q2

REPORT INFORMATION
  Report Type: 
  Country: None (occurrence: None)
  Receive Date: 20120621
  Receipt Date: 20120613
  Transmission Date: 20120825
  Serious: Yes (Hospitalization, Other)
  Sender: FDA-Public Use
  Company Number: US-ABBOTT-12P-163-0912376-00

PATIENT
  Sex: Male
  Weight: 99.88 kg

DRUGS (8)
  1. AMIODARONE HYDROCHLORIDE [Concomitant]
     Indication: SUPRAVENTRICULAR TACHYCARDIA
  2. METHYLPREDNISOLONE ACETATE [Concomitant]
     Indication: RHEUMATOID ARTHRITIS
  3. FOSAMAX [Concomitant]
     Indication: OSTEOPENIA
  4. HUMIRA [Suspect]
     Indication: RHEUMATOID ARTHRITIS
     Route: 058
     Dates: start: 20110101, end: 20120120
  5. TOPROL-XL [Concomitant]
     Indication: HYPERTENSION
  6. FLOMAX [Concomitant]
     Indication: BENIGN PROSTATIC HYPERPLASIA
  7. CRESTOR [Concomitant]
     Indication: BLOOD CHOLESTEROL INCREASED
  8. PLAQUENIL [Concomitant]
     Indication: RHEUMATOID ARTHRITIS

REACTIONS (10)
  - DIARRHOEA [None]
  - FULL BLOOD COUNT DECREASED [None]
  - ASTHENIA [None]
  - FATIGUE [None]
  - VOMITING [None]
  - ANAEMIA [None]
  - PYREXIA [None]
  - PNEUMONIA [None]
  - SPINAL FRACTURE [None]
  - RENAL CANCER [None]
